FAERS Safety Report 16784800 (Version 2)
Quarter: 2019Q4

REPORT INFORMATION
  Report Type: Report from Study
  Country: US (occurrence: US)
  Receive Date: 20190909
  Receipt Date: 20191218
  Transmission Date: 20200122
  Serious: Yes (Hospitalization)
  Sender: FDA-Public Use
  Company Number: US-SUN PHARMACEUTICAL INDUSTRIES LTD-2019R1-220052

PATIENT
  Age: 82 Year
  Sex: Male
  Weight: 81 kg

DRUGS (6)
  1. NYSTATIN. [Concomitant]
     Active Substance: NYSTATIN
     Indication: INFECTION PROPHYLAXIS
     Dosage: 4 MILLILITER, QID
     Route: 048
     Dates: start: 20190328, end: 20190425
  2. ACYCLOVIR. [Concomitant]
     Active Substance: ACYCLOVIR
     Indication: INFECTION PROPHYLAXIS
     Dosage: 400 MILLIGRAM, BID
     Route: 048
     Dates: start: 20190328
  3. TACROLIMUS. [Concomitant]
     Active Substance: TACROLIMUS
     Indication: IMMUNOSUPPRESSION
     Dosage: 2 MILLIGRAM, BID
     Route: 048
     Dates: start: 20190328, end: 20190507
  4. SULPHAMETHOXAZOLE/TRIMETHOPRIM [Suspect]
     Active Substance: SULFAMETHOXAZOLE\TRIMETHOPRIM
     Indication: INFECTION PROPHYLAXIS
     Dosage: 400/80 MG
     Route: 048
     Dates: start: 20190328
  5. ASP7317 [Concomitant]
     Active Substance: INVESTIGATIONAL PRODUCT
     Indication: AGE-RELATED MACULAR DEGENERATION
     Dosage: 50000 CELLS,ONCE
     Dates: start: 20190404
  6. MYCOPHENOLATE MOFETIL. [Concomitant]
     Active Substance: MYCOPHENOLATE MOFETIL
     Indication: IMMUNOSUPPRESSION
     Dosage: 1 GRAM, BID
     Route: 048
     Dates: start: 20190328

REACTIONS (1)
  - Pneumonia [Not Recovered/Not Resolved]

NARRATIVE: CASE EVENT DATE: 20190509
